FAERS Safety Report 4515987-6 (Version None)
Quarter: 2004Q4

REPORT INFORMATION
  Report Type: 
  Country: None (occurrence: None)
  Receive Date: 20041201
  Receipt Date: 20041101
  Transmission Date: 20050328
  Serious: Yes (Life-Threatening, Hospitalization)
  Sender: FDA-Public Use
  Company Number: M2004.1773

PATIENT
  Age: 66 Year
  Sex: Female

DRUGS (1)
  1. METOCLOPRAMIDE [Suspect]
     Indication: VOMITING
     Dosage: SINGLE DOSE

REACTIONS (10)
  - ANXIETY [None]
  - BLOOD PRESSURE DECREASED [None]
  - CYANOSIS [None]
  - DYSPNOEA [None]
  - FEELING COLD [None]
  - GENERAL PHYSICAL HEALTH DETERIORATION [None]
  - PHAEOCHROMOCYTOMA [None]
  - SENSATION OF HEAVINESS [None]
  - SHOCK [None]
  - WHEEZING [None]
